FAERS Safety Report 21780716 (Version 1)
Quarter: 2022Q4

REPORT INFORMATION
  Report Type: Other
  Country: RU (occurrence: None)
  Receive Date: 20221227
  Receipt Date: 20221227
  Transmission Date: 20230113
  Serious: Yes (Other)
  Sender: FDA-Public Use
  Company Number: RU-ROCHE-3205848

PATIENT
  Age: 82 Year
  Sex: Female

DRUGS (2)
  1. VEMURAFENIB [Suspect]
     Active Substance: VEMURAFENIB
     Indication: Metastatic malignant melanoma
     Route: 065
  2. COBIMETINIB [Suspect]
     Active Substance: COBIMETINIB
     Indication: Metastatic malignant melanoma
     Route: 065

REACTIONS (3)
  - Diarrhoea [Unknown]
  - Dementia [Unknown]
  - Asthenia [Unknown]

NARRATIVE: CASE EVENT DATE: 20221020
